FAERS Safety Report 7072044-5 (Version None)
Quarter: 2010Q4

REPORT INFORMATION
  Report Type: 
  Country: None (occurrence: None)
  Receive Date: 20101029
  Receipt Date: 20091124
  Transmission Date: 20110411
  Serious: No
  Sender: FDA-Public Use
  Company Number: A0826656A

PATIENT
  Age: 65 Year
  Sex: Male

DRUGS (9)
  1. ADVAIR DISKUS 100/50 [Suspect]
     Dosage: 1PUFF TWICE PER DAY
     Route: 055
     Dates: start: 20091123
  2. LIPITOR [Concomitant]
  3. MIRAPEX [Concomitant]
  4. GLUCOVANCE [Concomitant]
  5. LYRICA [Concomitant]
  6. TERAZOSIN HCL [Concomitant]
  7. ASPIRIN [Concomitant]
  8. MEPROBAMATE [Concomitant]
  9. PROAIR HFA [Concomitant]

REACTIONS (1)
  - OVERDOSE [None]
